FAERS Safety Report 18427532 (Version 1)
Quarter: 2020Q4

REPORT INFORMATION
  Report Type: Spontaneous
  Country: CN (occurrence: CN)
  Receive Date: 20201026
  Receipt Date: 20201026
  Transmission Date: 20210114
  Serious: Yes (Hospitalization, Other)
  Sender: FDA-Public Use
  Company Number: CN-GLAXOSMITHKLINE-CN2020APC204058

PATIENT
  Age: 11 Year
  Sex: Male

DRUGS (9)
  1. PHENOBARBITAL SODIUM. [Suspect]
     Active Substance: PHENOBARBITAL SODIUM
     Indication: EPILEPSY
     Dosage: UNK
     Route: 048
  2. CHLORPHENAMINE [Concomitant]
     Active Substance: CHLORPHENIRAMINE MALEATE
     Indication: DERMATITIS ALLERGIC
     Dosage: UNK
     Route: 048
  3. LAMOTRIGINE. [Suspect]
     Active Substance: LAMOTRIGINE
     Indication: EPILEPSY
     Dosage: UNK
     Route: 048
  4. CALCIUM GLUCONATE. [Concomitant]
     Active Substance: CALCIUM GLUCONATE
     Indication: DERMATITIS ALLERGIC
     Dosage: UNK
     Route: 042
  5. LEVETIRACETAM. [Concomitant]
     Active Substance: LEVETIRACETAM
     Indication: EPILEPSY
     Dosage: UNK
  6. CLONAZEPAM. [Concomitant]
     Active Substance: CLONAZEPAM
     Indication: EPILEPSY
     Dosage: UNK
     Route: 048
  7. CEFUROXIME. [Concomitant]
     Active Substance: CEFUROXIME
     Indication: TONSILLITIS BACTERIAL
     Dosage: UNK
     Route: 048
  8. DEPAKINE [Suspect]
     Active Substance: VALPROATE SODIUM
     Indication: EPILEPSY
     Dosage: UNK
     Route: 048
  9. IBUPROFEN. [Concomitant]
     Active Substance: IBUPROFEN
     Indication: TONSILLITIS BACTERIAL
     Dosage: UNK
     Route: 048

REACTIONS (27)
  - Heart rate increased [Recovered/Resolved]
  - Blister [Recovered/Resolved]
  - Blister rupture [Recovered/Resolved]
  - Nikolsky^s sign [Recovered/Resolved]
  - Skin exfoliation [Recovered/Resolved]
  - Aspartate aminotransferase increased [Recovered/Resolved]
  - Herpes simplex test positive [Recovered/Resolved]
  - Drug-induced liver injury [Recovered/Resolved]
  - Respiratory rate increased [Recovered/Resolved]
  - Scleral disorder [Recovered/Resolved]
  - Skin discolouration [Recovered/Resolved]
  - Skin erosion [Recovered/Resolved]
  - Drug eruption [Recovered/Resolved]
  - Body temperature increased [Recovered/Resolved]
  - Alanine aminotransferase increased [Recovered/Resolved]
  - Drug reaction with eosinophilia and systemic symptoms [Recovered/Resolved]
  - Face oedema [Recovered/Resolved]
  - Erythema [Recovered/Resolved]
  - Drug ineffective [Recovered/Resolved]
  - Toxic epidermal necrolysis [Recovered/Resolved]
  - Bilirubin conjugated increased [Recovered/Resolved]
  - Drug level decreased [Recovered/Resolved]
  - Neutrophil count increased [Recovered/Resolved]
  - Jaundice [Recovered/Resolved]
  - Lip dry [Recovered/Resolved]
  - Blood bilirubin increased [Recovered/Resolved]
  - Condition aggravated [Recovered/Resolved]
